FAERS Safety Report 7508586-5 (Version None)
Quarter: 2011Q2

REPORT INFORMATION
  Report Type: 
  Country: None (occurrence: None)
  Receive Date: 20110527
  Receipt Date: 20100621
  Transmission Date: 20111010
  Serious: No
  Sender: FDA-Public Use
  Company Number: A0868249A

PATIENT
  Age: 39 Year
  Sex: Female
  Weight: 74.1 kg

DRUGS (1)
  1. FLOLAN [Suspect]
     Indication: PULMONARY ARTERIAL HYPERTENSION
     Dosage: 84NGKM CONTINUOUS
     Dates: start: 20100505

REACTIONS (2)
  - POLLAKIURIA [None]
  - NOCTURIA [None]
